FAERS Safety Report 15607721 (Version 1)
Quarter: 2018Q4

REPORT INFORMATION
  Report Type: Spontaneous
  Country: FR (occurrence: FR)
  Receive Date: 20181112
  Receipt Date: 20181112
  Transmission Date: 20190205
  Serious: Yes (Hospitalization)
  Sender: FDA-Public Use
  Company Number: FR-JNJFOC-20181108967

PATIENT
  Age: 30 Year
  Sex: Male
  Weight: 64 kg

DRUGS (2)
  1. XARELTO [Suspect]
     Active Substance: RIVAROXABAN
     Indication: DEEP VEIN THROMBOSIS
     Route: 048
     Dates: start: 20180727, end: 20180913
  2. INNOHEP [Suspect]
     Active Substance: TINZAPARIN SODIUM
     Indication: DEEP VEIN THROMBOSIS
     Route: 058

REACTIONS (3)
  - Phlebitis superficial [Recovering/Resolving]
  - Anaemia [Not Recovered/Not Resolved]
  - Muscle haemorrhage [Recovering/Resolving]

NARRATIVE: CASE EVENT DATE: 20180802
